FAERS Safety Report 4696112-8 (Version None)
Quarter: 2005Q2

REPORT INFORMATION
  Report Type: 
  Country: None (occurrence: None)
  Receive Date: 20050620
  Receipt Date: 20050602
  Transmission Date: 20051028
  Serious: Yes (Hospitalization)
  Sender: FDA-Public Use
  Company Number: DSA_26571_2005

PATIENT
  Age: 42 Year
  Sex: Female

DRUGS (5)
  1. TAVOR [Suspect]
     Dosage: DF ONCE PO
     Route: 048
     Dates: start: 20050531, end: 20050531
  2. MORPHINE [Suspect]
     Dosage: DF ONCE
     Dates: start: 20050531, end: 20050531
  3. SAROTEN [Suspect]
     Dosage: DF ONCE PO
     Route: 048
     Dates: start: 20050531, end: 20050531
  4. STANGYL [Suspect]
     Dosage: DF ONCE PO
     Route: 048
     Dates: start: 20050531, end: 20050531
  5. TRUXAL [Suspect]
     Dosage: 20 TAB ONCE PO
     Route: 048
     Dates: start: 20050531, end: 20050531

REACTIONS (4)
  - BOWEL SOUNDS ABNORMAL [None]
  - INTENTIONAL MISUSE [None]
  - MULTIPLE DRUG OVERDOSE [None]
  - SOPOR [None]
